FAERS Safety Report 4668926-1 (Version None)
Quarter: 2005Q2

REPORT INFORMATION
  Report Type: 
  Country: None (occurrence: None)
  Receive Date: 20050523
  Receipt Date: 20041222
  Transmission Date: 20051028
  Serious: Yes (Death, Hospitalization, Other)
  Sender: FDA-Public Use
  Company Number: PHBS2004DK17186

PATIENT
  Age: 66 Year
  Sex: Male
  Weight: 90 kg

DRUGS (4)
  1. ZOMETA [Suspect]
     Indication: METASTASES TO BONE
     Dosage: 4 MG, TIW
     Dates: start: 20020910, end: 20040917
  2. GABAPENTIN [Concomitant]
     Dates: start: 20020628, end: 20030512
  3. TODOLAC [Concomitant]
     Dates: start: 20020820
  4. OXYCONTIN [Concomitant]
     Dates: start: 20020820

REACTIONS (10)
  - ACINETOBACTER INFECTION [None]
  - C-REACTIVE PROTEIN INCREASED [None]
  - MALIGNANT NEOPLASM PROGRESSION [None]
  - OSTEONECROSIS [None]
  - PRIMARY SEQUESTRUM [None]
  - RED BLOOD CELL SEDIMENTATION RATE INCREASED [None]
  - SEQUESTRECTOMY [None]
  - STAPHYLOCOCCAL INFECTION [None]
  - STREPTOCOCCAL INFECTION [None]
  - WOUND DEHISCENCE [None]
